FAERS Safety Report 7249215-8 (Version None)
Quarter: 2011Q1

REPORT INFORMATION
  Report Type: 
  Country: None (occurrence: None)
  Receive Date: 20110128
  Receipt Date: 20101119
  Transmission Date: 20110831
  Serious: Yes (Other)
  Sender: FDA-Public Use
  Company Number: US-BAYER-201034585NA

PATIENT
  Sex: Female
  Weight: 70.295 kg

DRUGS (2)
  1. OCELLA [Suspect]
     Indication: PRODUCT USED FOR UNKNOWN INDICATION
     Dosage: UNK
     Dates: start: 20080801
  2. YASMIN [Suspect]
     Dosage: UNK
     Route: 048
     Dates: start: 20060114, end: 20080508

REACTIONS (10)
  - ABDOMINAL PAIN [None]
  - BILIARY COLIC [None]
  - SPHINCTER OF ODDI DYSFUNCTION [None]
  - CHEST PAIN [None]
  - NAUSEA [None]
  - ABDOMINAL PAIN UPPER [None]
  - IMPAIRED GASTRIC EMPTYING [None]
  - VOMITING [None]
  - EPIGASTRIC DISCOMFORT [None]
  - CHOLELITHIASIS [None]
